FAERS Safety Report 5703256-8 (Version None)
Quarter: 2008Q2

REPORT INFORMATION
  Report Type: 
  Country: None (occurrence: None)
  Receive Date: 20080411
  Receipt Date: 20080331
  Transmission Date: 20081010
  Serious: Yes (Other)
  Sender: FDA-Public Use
  Company Number: ES-BAYER-200815899GPV

PATIENT
  Age: 28 Year
  Sex: Female

DRUGS (1)
  1. YASMIN [Suspect]
     Indication: DRUG USE FOR UNKNOWN INDICATION
     Route: 048
     Dates: start: 20050201, end: 20080222

REACTIONS (4)
  - BACK PAIN [None]
  - BLOOD CORTISOL INCREASED [None]
  - PYELONEPHRITIS [None]
  - URINARY TRACT INFECTION [None]
